FAERS Safety Report 9671451 (Version 2)
Quarter: 2013Q4

REPORT INFORMATION
  Report Type: Report from Study
  Country: MX (occurrence: MX)
  Receive Date: 20131106
  Receipt Date: 20131106
  Transmission Date: 20140711
  Serious: Yes (Death, Other)
  Sender: FDA-Public Use
  Company Number: PHHY2013MX052447

PATIENT
  Age: 66 Year
  Sex: Female

DRUGS (5)
  1. DIOVAN [Suspect]
     Indication: HYPERTENSION
     Dosage: 1 DF (80 MG) DAILY
     Route: 048
     Dates: start: 201110
  2. INSULIN [Concomitant]
     Indication: DIABETES MELLITUS
     Dosage: UNK UKN, UNK
  3. DIGOXIN [Concomitant]
     Dosage: 0.5 DF, UNK
  4. IMDUR [Concomitant]
     Indication: BLOOD PRESSURE ABNORMAL
     Dosage: UNK UKN, UNK
  5. CAUDALINE [Concomitant]
     Indication: CARDIOVASCULAR DISORDER
     Dosage: 0.5 DF, DAILY

REACTIONS (10)
  - Cardiac arrest [Fatal]
  - Anaphylactic shock [Fatal]
  - Cardiomegaly [Unknown]
  - Diabetic complication [Unknown]
  - Renal impairment [Unknown]
  - Amnesia [Not Recovered/Not Resolved]
  - Blood glucose increased [Not Recovered/Not Resolved]
  - Feeling abnormal [Not Recovered/Not Resolved]
  - Somnolence [Unknown]
  - Blood pressure increased [Not Recovered/Not Resolved]
